FAERS Safety Report 9181914 (Version 2)
Quarter: 2013Q2

REPORT INFORMATION
  Report Type: Spontaneous
  Country: US (occurrence: US)
  Receive Date: 20130322
  Receipt Date: 20130503
  Transmission Date: 20140414
  Serious: Yes (Other)
  Sender: FDA-Public Use
  Company Number: US-PFIZER INC-2013090297

PATIENT
  Age: 66 Year
  Sex: Female

DRUGS (12)
  1. PREMARIN [Suspect]
     Indication: MENOPAUSAL SYMPTOMS
     Dosage: 1.25 MG, 1X/DAY
     Route: 048
     Dates: start: 200611
  2. VICODIN [Concomitant]
     Indication: OSTEOARTHRITIS
     Dosage: 5MG-500MG, PT TO MAKE APPT
  3. GEMFIBROZIL [Concomitant]
     Dosage: 600 MG, 2X/DAY
     Route: 048
  4. HYDROCHLOROTHIAZIDE [Concomitant]
     Dosage: 25 MG, 1X/DAY
     Route: 048
  5. METHOCARBAMOL [Concomitant]
     Indication: NECK PAIN
     Dosage: 500 MG, 4X/DAY, TAKE ONE TO TWO TABLETS BY MOUTH FOUR TIMES A DAY AS NEEDED FOR NECK PAIN
     Route: 048
  6. TRAZODONE HYDROCHLORIDE [Concomitant]
     Indication: INSOMNIA
     Dosage: 50 MG, TAKE ONE TABLET BY MOUTH EVERY EVENING AS NEEDED FOR SLEEP
     Route: 048
  7. ATENOLOL [Concomitant]
     Dosage: 100 MG, 1X/DAY
     Route: 048
  8. LOSARTAN POTASSIUM [Concomitant]
     Indication: HYPERTENSION
     Dosage: 100 MG, 1X/DAY
     Route: 048
  9. NITROGLYCERIN [Concomitant]
     Indication: CHEST PAIN
     Dosage: 0.4 MG, AS NEEDED
     Route: 060
  10. FLUTICASONE [Concomitant]
     Dosage: 50 UG, (SPRAY 1 SPRAY BY INTRANASAL ROUTE EVERY DAY IN EACH NOSTRIL)
     Route: 045
  11. ENALAPRIL MALEATE [Concomitant]
     Indication: HYPERTENSION
     Dosage: 20 MG, 2X/DAY
  12. VALACICLOVIR HYDROCHLORIDE [Concomitant]
     Dosage: 1000 MG, 3X/DAY
     Route: 048

REACTIONS (3)
  - Intracranial aneurysm [Recovering/Resolving]
  - Hearing impaired [Unknown]
  - Memory impairment [Unknown]
